FAERS Safety Report 19817364 (Version 1)
Quarter: 2021Q3

REPORT INFORMATION
  Report Type: Spontaneous
  Country: CN (occurrence: CN)
  Receive Date: 20210910
  Receipt Date: 20210910
  Transmission Date: 20211014
  Serious: Yes (Hospitalization)
  Sender: FDA-Public Use
  Company Number: CN-PFIZER INC-202101154061

PATIENT
  Age: 60 Year
  Sex: Male
  Weight: 73 kg

DRUGS (4)
  1. CYTARABINE. [Suspect]
     Active Substance: CYTARABINE
     Dosage: 0.05 G, 1X/DAY
     Route: 037
     Dates: start: 20210816, end: 20210816
  2. CYTARABINE. [Suspect]
     Active Substance: CYTARABINE
     Indication: NON-HODGKIN^S LYMPHOMA
     Dosage: 2.0 G, 2X/DAY
     Route: 041
     Dates: start: 20210815, end: 20210817
  3. METHOTREXATE. [Suspect]
     Active Substance: METHOTREXATE
     Indication: NON-HODGKIN^S LYMPHOMA
     Dosage: 2.0 G, 1X/DAY
     Dates: start: 20210814, end: 20210814
  4. METHOTREXATE. [Suspect]
     Active Substance: METHOTREXATE
     Dosage: 0.01 G, 1X/DAY
     Route: 037
     Dates: start: 20210816, end: 20210816

REACTIONS (1)
  - Myelosuppression [Recovering/Resolving]

NARRATIVE: CASE EVENT DATE: 20210823
